FAERS Safety Report 15740521 (Version 1)
Quarter: 2018Q4

REPORT INFORMATION
  Report Type: Spontaneous
  Country: US (occurrence: US)
  Receive Date: 20181213
  Receipt Date: 20181213
  Transmission Date: 20190205
  Serious: Yes (Hospitalization)
  Sender: FDA-Public Use
  Company Number: None

PATIENT
  Age: 60 Year
  Sex: Female
  Weight: 73.9 kg

DRUGS (1)
  1. PAZOPANIB [Suspect]
     Active Substance: PAZOPANIB
     Dates: end: 20181128

REACTIONS (3)
  - Pelvic venous thrombosis [None]
  - Thrombophlebitis superficial [None]
  - Drug ineffective [None]

NARRATIVE: CASE EVENT DATE: 20181129
